FAERS Safety Report 9454526 (Version 2)
Quarter: 2013Q3

REPORT INFORMATION
  Report Type: Spontaneous
  Country: FR (occurrence: FR)
  Receive Date: 20130812
  Receipt Date: 20130925
  Transmission Date: 20140515
  Serious: Yes (Hospitalization)
  Sender: FDA-Public Use
  Company Number: FR-ROCHE-1258705

PATIENT
  Age: 66 Year
  Sex: Male

DRUGS (7)
  1. ROCEPHINE [Suspect]
     Indication: PRODUCT USED FOR UNKNOWN INDICATION
     Route: 048
     Dates: start: 20130719, end: 20130720
  2. METHOTREXATE [Interacting]
     Indication: PRODUCT USED FOR UNKNOWN INDICATION
     Dosage: SINGLE DOSE 100 MG/ML, METHOTREXATE MYLAN
     Route: 041
     Dates: start: 20130720, end: 20130720
  3. METHOTREXATE [Interacting]
     Dosage: SECOND COURSE
     Route: 065
     Dates: start: 20130814
  4. INEXIUM [Interacting]
     Indication: PRODUCT USED FOR UNKNOWN INDICATION
     Dosage: DOSE: 40 MG
     Route: 048
  5. SEROPLEX [Concomitant]
  6. MEDROL [Concomitant]
  7. KEPPRA [Concomitant]

REACTIONS (3)
  - Chemotherapeutic drug level above therapeutic [Recovered/Resolved]
  - Renal failure acute [Recovered/Resolved]
  - Drug interaction [Unknown]
